FAERS Safety Report 8171674-7 (Version None)
Quarter: 2012Q1

REPORT INFORMATION
  Report Type: 
  Country: None (occurrence: None)
  Receive Date: 20120228
  Receipt Date: 20120221
  Transmission Date: 20120608
  Serious: Yes (Other)
  Sender: FDA-Public Use
  Company Number: US-BAYER-2012-017422

PATIENT
  Age: 75 Year
  Sex: Female
  Weight: 113.38 kg

DRUGS (3)
  1. ALEVE (CAPLET) [Suspect]
     Indication: BACK PAIN
     Dosage: 2 TABLETS IN THE MORNING AND 1 TABLET IN THE EVENING; BOTTLE COUNT 130CT
     Route: 048
     Dates: start: 20120220, end: 20120220
  2. ANTIHYPERTENSIVES [Concomitant]
  3. ANTI-ASTHMATICS [Concomitant]
     Indication: ASTHMA

REACTIONS (2)
  - LOSS OF CONSCIOUSNESS [None]
  - BACK PAIN [None]
